FAERS Safety Report 10425673 (Version 1)
Quarter: 2014Q3

REPORT INFORMATION
  Report Type: Spontaneous
  Country: US (occurrence: US)
  Receive Date: 20140903
  Receipt Date: 20140903
  Transmission Date: 20150326
  Serious: No
  Sender: FDA-Public Use
  Company Number: US-ASTRAZENECA-2014SE63436

PATIENT
  Age: 57 Year
  Sex: Female
  Weight: 50.3 kg

DRUGS (5)
  1. GLUTEN FREE MULTI VITAMIN [Concomitant]
     Indication: ILL-DEFINED DISORDER
     Dosage: 1 TABLET DAILY
     Route: 048
     Dates: start: 2013
  2. LEVOTHYROXINE [Concomitant]
     Active Substance: LEVOTHYROXINE
     Indication: THYROID DISORDER
     Dosage: 75MCG DAILY
     Route: 048
     Dates: start: 2010
  3. GLUTEN FREE FISH OIL [Concomitant]
     Indication: ILL-DEFINED DISORDER
     Route: 048
     Dates: start: 2012
  4. GLUTEN FREE FIBER [Concomitant]
     Indication: ILL-DEFINED DISORDER
     Dosage: 2 HEAPING TSP DAILY
     Route: 048
     Dates: start: 2013
  5. METOPROLOL SUCCINATE. [Suspect]
     Active Substance: METOPROLOL SUCCINATE
     Indication: BLOOD PRESSURE ABNORMAL
     Dosage: ONE 50MG AND HALF 50 DAILY
     Route: 048
     Dates: start: 2003

REACTIONS (3)
  - Body height decreased [Unknown]
  - Osteoporosis [Unknown]
  - Coeliac disease [Recovered/Resolved]

NARRATIVE: CASE EVENT DATE: 2010
